FAERS Safety Report 9722488 (Version 1)
Quarter: 2013Q4

REPORT INFORMATION
  Report Type: Spontaneous
  Country: US (occurrence: None)
  Receive Date: 20131127
  Receipt Date: 20131127
  Transmission Date: 20140711
  Serious: Yes (Other)
  Sender: FDA-Public Use
  Company Number: None

PATIENT
  Age: 27 Year
  Sex: Male
  Weight: 91.63 kg

DRUGS (2)
  1. RIFAPENTINE [Suspect]
     Dosage: 900 MG 1 X WEEK FOR 12 WEEKS
     Dates: start: 20130809, end: 20130922
  2. ISONIAZID [Suspect]
     Dosage: 900 MG 1 X WEEKLY FOR 12 WEEKS
     Dates: start: 20130809, end: 20130922

REACTIONS (3)
  - Arthralgia [None]
  - Fatigue [None]
  - Decreased appetite [None]
